FAERS Safety Report 9281578 (Version 2)
Quarter: 2013Q4

REPORT INFORMATION
  Report Type: Report from Study
  Country: CA (occurrence: CA)
  Receive Date: 20130509
  Receipt Date: 20131002
  Transmission Date: 20140711
  Serious: Yes (Other)
  Sender: FDA-Public Use
  Company Number: CA-ELI_LILLY_AND_COMPANY-CA201303006337

PATIENT
  Age: 75 Year
  Sex: Female

DRUGS (11)
  1. TERIPARATIDE [Suspect]
     Indication: OSTEOPOROSIS
     Dosage: 20 UG, QD
     Route: 058
     Dates: start: 20120705, end: 20130525
  2. CALCIUM [Concomitant]
  3. VITAMIN D NOS [Concomitant]
  4. SYNTHROID [Concomitant]
  5. PANTOLOC                           /01263204/ [Concomitant]
  6. GLUCOSAMINE [Concomitant]
  7. TYLENOL                            /00020001/ [Concomitant]
  8. LACTULOSE [Concomitant]
  9. MOBICOX [Concomitant]
  10. PLAQUENIL                          /00072603/ [Concomitant]
  11. VITAMIN C [Concomitant]

REACTIONS (3)
  - Breast cancer stage I [Not Recovered/Not Resolved]
  - Fear [Not Recovered/Not Resolved]
  - Eye disorder [Recovered/Resolved]
